FAERS Safety Report 13186215 (Version 2)
Quarter: 2017Q2

REPORT INFORMATION
  Report Type: Report from Study
  Country: None (occurrence: CO)
  Receive Date: 20170204
  Receipt Date: 20170426
  Transmission Date: 20170830
  Serious: Yes (Other)
  Sender: FDA-Public Use
  Company Number: CO-ABBVIE-17K-036-1861325-00

PATIENT
  Age: 22 Year
  Sex: Female

DRUGS (1)
  1. HUMIRA [Suspect]
     Active Substance: ADALIMUMAB
     Indication: COLITIS ULCERATIVE
     Route: 058
     Dates: start: 20101209, end: 20161220

REACTIONS (3)
  - Anogenital warts [Recovering/Resolving]
  - Perineal erythema [Recovering/Resolving]
  - Perineal pain [Recovering/Resolving]

NARRATIVE: CASE EVENT DATE: 20170102
